FAERS Safety Report 5588804-3 (Version None)
Quarter: 2008Q1

REPORT INFORMATION
  Report Type: 
  Country: None (occurrence: None)
  Receive Date: 20080111
  Receipt Date: 20080103
  Transmission Date: 20080703
  Serious: Yes (Hospitalization)
  Sender: FDA-Public Use
  Company Number: GR-ABBOTT-07P-066-0421193-00

PATIENT
  Sex: Male
  Weight: 59 kg

DRUGS (11)
  1. ZEMPLAR [Suspect]
     Indication: HYPERPARATHYROIDISM SECONDARY
     Route: 042
     Dates: start: 20070522, end: 20071017
  2. DARBEPOETIN ALFA [Concomitant]
     Indication: ANAEMIA
     Route: 042
     Dates: start: 20070717, end: 20071017
  3. IRON DEXTRAN [Concomitant]
     Indication: IRON DEFICIENCY ANAEMIA
     Route: 042
  4. FILICIN TAB [Concomitant]
     Indication: ANAEMIA
  5. ALLOPURINOL [Concomitant]
     Indication: HYPERURICAEMIA
     Route: 048
  6. QUINAPRIL HCL [Concomitant]
     Indication: HYPERTENSION
     Route: 048
  7. AMLODIPINE [Concomitant]
     Indication: HYPERTENSION
     Route: 048
     Dates: end: 20071017
  8. CALCIUM CARBONATE [Concomitant]
     Indication: MINERAL SUPPLEMENTATION
     Route: 048
  9. NEUROBION [Concomitant]
     Indication: VITAMIN SUPPLEMENTATION
     Route: 042
  10. FUROSEMIDE [Concomitant]
     Indication: RESIDUAL URINE
     Route: 048
     Dates: end: 20071017
  11. PARICALCITOL [Concomitant]
     Indication: HYPERPARATHYROIDISM SECONDARY
     Route: 042
     Dates: start: 20071108

REACTIONS (2)
  - ACUTE MYOCARDIAL INFARCTION [None]
  - ACUTE PULMONARY OEDEMA [None]
